FAERS Safety Report 5372105-2 (Version None)
Quarter: 2007Q2

REPORT INFORMATION
  Report Type: 
  Country: None (occurrence: None)
  Receive Date: 20070615
  Receipt Date: 20070514
  Transmission Date: 20071010
  Serious: No
  Sender: FDA-Public Use
  Company Number: SP01238

PATIENT
  Age: 64 Year
  Sex: Female
  Weight: 59.4212 kg

DRUGS (7)
  1. XIFAXAN [Suspect]
     Indication: DIARRHOEA
     Dosage: 1200 MG (400 MG, 3 IN 1 D), ORAL
     Route: 048
     Dates: start: 20070201, end: 20070512
  2. DIAZEPAM [Concomitant]
  3. HORMONE REPLACEMENT THERAPY [Concomitant]
  4. TORSEMIDE [Concomitant]
  5. POTASSIUM IODIDE [Concomitant]
  6. BUDESONIDE [Concomitant]
  7. MESALAZINE [Concomitant]

REACTIONS (6)
  - DISTURBANCE IN ATTENTION [None]
  - DRY MOUTH [None]
  - INSOMNIA [None]
  - LIP DRY [None]
  - NASAL CONGESTION [None]
  - WEIGHT DECREASED [None]
